FAERS Safety Report 23861787 (Version 2)
Quarter: 2024Q3

REPORT INFORMATION
  Report Type: Spontaneous
  Country: US (occurrence: US)
  Receive Date: 20240516
  Receipt Date: 20240815
  Transmission Date: 20241016
  Serious: Yes (Hospitalization)
  Sender: JOHNSON AND JOHNSON
  Company Number: US-JNJFOC-20240524123

PATIENT
  Sex: Female

DRUGS (1)
  1. DARZALEX FASPRO [Suspect]
     Active Substance: DARATUMUMAB\HYALURONIDASE-FIHJ
     Indication: Product used for unknown indication
     Route: 065
     Dates: start: 202401

REACTIONS (3)
  - Hospitalisation [Unknown]
  - Injection site reaction [Unknown]
  - Product dose omission issue [Unknown]
